FAERS Safety Report 17272633 (Version 1)
Quarter: 2020Q1

REPORT INFORMATION
  Report Type: Spontaneous
  Country: US (occurrence: US)
  Receive Date: 20200114
  Receipt Date: 20200114
  Transmission Date: 20200409
  Serious: Yes (Life-Threatening, Hospitalization)
  Sender: FDA-Public Use
  Company Number: None

PATIENT
  Age: 71 Year
  Sex: Male
  Weight: 56.25 kg

DRUGS (1)
  1. TAGRISSO [Suspect]
     Active Substance: OSIMERTINIB
     Indication: NEOPLASM MALIGNANT
     Dosage: ?          QUANTITY:1 TABLET(S);?
     Route: 048
     Dates: start: 20191129, end: 20200101

REACTIONS (7)
  - Temperature regulation disorder [None]
  - Dyspnoea [None]
  - Wheezing [None]
  - Infection [None]
  - Appetite disorder [None]
  - Inflammation [None]
  - Gait disturbance [None]

NARRATIVE: CASE EVENT DATE: 20200103
